FAERS Safety Report 6450816-5 (Version None)
Quarter: 2009Q4

REPORT INFORMATION
  Report Type: 
  Country: None (occurrence: None)
  Receive Date: 20091123
  Receipt Date: 20090219
  Transmission Date: 20100525
  Serious: Yes (Hospitalization)
  Sender: FDA-Public Use
  Company Number: US-AMGEN-QUU331383

PATIENT
  Sex: Female
  Weight: 88.5 kg

DRUGS (5)
  1. ENBREL [Suspect]
     Indication: RHEUMATOID ARTHRITIS
     Route: 058
     Dates: start: 20010925, end: 20081214
  2. METHOTREXATE [Concomitant]
     Route: 048
     Dates: start: 20030101
  3. VOLTAREN [Concomitant]
  4. FOLIC ACID [Concomitant]
  5. ZOLOFT [Concomitant]

REACTIONS (1)
  - BREAST CANCER METASTATIC [None]
